FAERS Safety Report 25945943 (Version 2)
Quarter: 2025Q4

REPORT INFORMATION
  Report Type: Spontaneous
  Country: EU (occurrence: EU)
  Receive Date: 20251021
  Receipt Date: 20251107
  Transmission Date: 20260117
  Serious: Yes (Hospitalization)
  Sender: TEVA
  Company Number: EU-TEVA-VS-3383448

PATIENT
  Age: 29 Year
  Sex: Female

DRUGS (1)
  1. CIPROFLOXACIN [Suspect]
     Active Substance: CIPROFLOXACIN
     Indication: Mouth ulceration
     Route: 065

REACTIONS (3)
  - Glucose-6-phosphate dehydrogenase deficiency [Unknown]
  - Haemolytic anaemia [Unknown]
  - Folate deficiency [Unknown]
